FAERS Safety Report 24776997 (Version 2)
Quarter: 2025Q1

REPORT INFORMATION
  Report Type: Spontaneous
  Country: JP (occurrence: JP)
  Receive Date: 20241226
  Receipt Date: 20250306
  Transmission Date: 20250408
  Serious: Yes (Death, Life-Threatening, Other)
  Sender: KYOWA
  Company Number: JP-KYOWA KIRIN , INC.-2024KK024653

PATIENT

DRUGS (1)
  1. POTELIGEO [Suspect]
     Active Substance: MOGAMULIZUMAB-KPKC
     Indication: Adult T-cell lymphoma/leukaemia
     Route: 041
     Dates: start: 20221206, end: 20221222

REACTIONS (2)
  - Autoimmune disorder [Unknown]
  - Adult T-cell lymphoma/leukaemia [Fatal]

NARRATIVE: CASE EVENT DATE: 20230116
